FAERS Safety Report 6695475-1 (Version None)
Quarter: 2010Q2

REPORT INFORMATION
  Report Type: 
  Country: None (occurrence: None)
  Receive Date: 20100422
  Receipt Date: 20100422
  Transmission Date: 20101027
  Serious: Yes (Hospitalization)
  Sender: FDA-Public Use
  Company Number: None

PATIENT
  Sex: Male
  Weight: 111.5 kg

DRUGS (2)
  1. TAXOTERE [Suspect]
     Dosage: 825 MG
  2. PREDNISONE [Suspect]
     Dosage: 920 MG

REACTIONS (4)
  - ABDOMINAL DISTENSION [None]
  - ABDOMINAL PAIN [None]
  - ASCITES [None]
  - DUODENAL PERFORATION [None]
